FAERS Safety Report 24328634 (Version 1)
Quarter: 2024Q3

REPORT INFORMATION
  Report Type: Spontaneous
  Country: CN (occurrence: CN)
  Receive Date: 20240917
  Receipt Date: 20240917
  Transmission Date: 20241017
  Serious: Yes (Hospitalization)
  Sender: ELI LILLY AND CO
  Company Number: CN-ELI_LILLY_AND_COMPANY-CN202409003905

PATIENT
  Age: 73 Year
  Sex: Male

DRUGS (4)
  1. INSULIN HUMAN [Suspect]
     Active Substance: INSULIN HUMAN
     Indication: Thrombolysis
     Dosage: 45 MG, SINGLE
     Route: 058
     Dates: start: 20240803, end: 20240803
  2. ALTEPLASE [Suspect]
     Active Substance: ALTEPLASE
     Indication: Thrombolysis
     Dosage: 45 MG, UNKNOWN
     Route: 042
     Dates: start: 20240803
  3. ALTEPLASE [Suspect]
     Active Substance: ALTEPLASE
     Dosage: 4.5 MG, UNKNOWN
     Route: 040
     Dates: start: 20240803
  4. ALTEPLASE [Suspect]
     Active Substance: ALTEPLASE
     Dosage: 40.5 MG, UNKNOWN
     Route: 042
     Dates: start: 20240803

REACTIONS (3)
  - Gingival bleeding [Recovering/Resolving]
  - Cerebral haemorrhage [Recovering/Resolving]
  - Off label use [Unknown]

NARRATIVE: CASE EVENT DATE: 20240803
